FAERS Safety Report 18930811 (Version 5)
Quarter: 2021Q3

REPORT INFORMATION
  Report Type: Spontaneous
  Country: US (occurrence: US)
  Receive Date: 20210224
  Receipt Date: 20210726
  Transmission Date: 20211014
  Serious: Yes (Other)
  Sender: FDA-Public Use
  Company Number: US-BIOCODEX SA-2021000019

PATIENT

DRUGS (5)
  1. DIACOMIT [Suspect]
     Active Substance: STIRIPENTOL
     Indication: SEVERE MYOCLONIC EPILEPSY OF INFANCY
     Dosage: 1000 MILLIGRAM EVERY 1 DAY(S) 500MG TWICE DAILY
     Route: 065
     Dates: start: 20201014
  2. DEPAKOTE [Concomitant]
     Active Substance: DIVALPROEX SODIUM
     Indication: EPILEPSY
     Dosage: 1.5ML THREE TIMES DAILY
     Route: 048
     Dates: start: 20210305
  3. EPIDIOLEX [Concomitant]
     Active Substance: CANNABIDIOL
     Indication: SEVERE MYOCLONIC EPILEPSY OF INFANCY
     Dosage: 1.5ML TWICE DAILY
     Route: 048
     Dates: start: 20181205
  4. DIACOMIT [Suspect]
     Active Substance: STIRIPENTOL
     Dosage: 500 MILLIGRAM EVERY 1 DAY(S) TWO CAPSULES OF 250 MG TWICE DAILY
     Route: 048
     Dates: start: 20210305
  5. ONFI [Concomitant]
     Active Substance: CLOBAZAM
     Indication: EPILEPSY
     Dosage: 10MG (1/2 TABLET) AM AND 10MG (1/2 TABLET) PM
     Route: 048
     Dates: start: 20130624

REACTIONS (5)
  - Seizure [Not Recovered/Not Resolved]
  - Fatigue [Unknown]
  - Decreased appetite [Unknown]
  - Adverse drug reaction [Unknown]
  - Weight decreased [Unknown]

NARRATIVE: CASE EVENT DATE: 20201102
